FAERS Safety Report 5489946-3 (Version None)
Quarter: 2007Q4

REPORT INFORMATION
  Report Type: 
  Country: None (occurrence: None)
  Receive Date: 20071018
  Receipt Date: 20071009
  Transmission Date: 20080405
  Serious: Yes (Other)
  Sender: FDA-Public Use
  Company Number: US-PFIZER INC-2007085256

PATIENT
  Sex: Female
  Weight: 77.6 kg

DRUGS (5)
  1. CHANTIX [Suspect]
     Indication: SMOKING CESSATION THERAPY
  2. ZOLOFT [Concomitant]
  3. XANAX [Concomitant]
  4. NEXIUM [Concomitant]
  5. AMBIEN [Concomitant]

REACTIONS (1)
  - HOMICIDAL IDEATION [None]
